FAERS Safety Report 17298089 (Version 1)
Quarter: 2020Q1

REPORT INFORMATION
  Report Type: Report from Study
  Country: None (occurrence: BR)
  Receive Date: 20200122
  Receipt Date: 20200122
  Transmission Date: 20200409
  Serious: Yes (Other)
  Sender: FDA-Public Use
  Company Number: BR-ABBVIE-20K-020-3238015-00

PATIENT
  Sex: Female

DRUGS (2)
  1. HUMIRA [Suspect]
     Active Substance: ADALIMUMAB
     Route: 058
  2. HUMIRA [Suspect]
     Active Substance: ADALIMUMAB
     Indication: RHEUMATOID ARTHRITIS
     Route: 058
     Dates: end: 201911

REACTIONS (6)
  - Wound haemorrhage [Not Recovered/Not Resolved]
  - Hypersensitivity [Not Recovered/Not Resolved]
  - Joint effusion [Not Recovered/Not Resolved]
  - Bacterial test positive [Unknown]
  - Pruritus [Not Recovered/Not Resolved]
  - Gait disturbance [Unknown]

NARRATIVE: CASE EVENT DATE: 201905
